FAERS Safety Report 23912082 (Version 4)
Quarter: 2024Q3

REPORT INFORMATION
  Report Type: Spontaneous
  Country: US (occurrence: US)
  Receive Date: 20240528
  Receipt Date: 20240924
  Transmission Date: 20241017
  Serious: No
  Sender: SANOFI AVENTIS
  Company Number: US-SA-SAC20240523000803

PATIENT
  Age: 34 Year
  Sex: Male

DRUGS (4)
  1. ALTUVIIIO [Suspect]
     Active Substance: EFANESOCTOCOG ALFA
     Indication: Haemorrhage
     Dosage: 3900 IU, QW
     Route: 042
  2. ALTUVIIIO [Suspect]
     Active Substance: EFANESOCTOCOG ALFA
     Indication: Injury
     Dosage: 4000 U (+/-10%), QW
     Route: 042
  3. ALTUVIIIO [Suspect]
     Active Substance: EFANESOCTOCOG ALFA
     Dosage: 2000 U (+/-10%), ONCE AS NEEDED FOR BLEEDING/ INJURY FOR UP TO 1 DOSE ADDITIONAL PER WEEK
     Route: 042
  4. ALTUVIIIO [Suspect]
     Active Substance: EFANESOCTOCOG ALFA
     Dosage: 8000 U (INFUSE HIS PROPHY DOSE OF ALTUVIIIO 4,000 UNITS AND AN ADDITIONAL 4,000 UNITS DOSE ON THE SA
     Route: 042
     Dates: start: 20240826, end: 20240826

REACTIONS (7)
  - Road traffic accident [Unknown]
  - Injury [Unknown]
  - Haemorrhage [Unknown]
  - Exostosis [Unknown]
  - Road traffic accident [Unknown]
  - Fall [Unknown]
  - Tooth extraction [Unknown]

NARRATIVE: CASE EVENT DATE: 20240518
